FAERS Safety Report 4521253-5 (Version None)
Quarter: 2004Q4

REPORT INFORMATION
  Report Type: 
  Country: None (occurrence: None)
  Receive Date: 20041203
  Receipt Date: 20041122
  Transmission Date: 20050328
  Serious: Yes (Hospitalization)
  Sender: FDA-Public Use
  Company Number: 2004CG02343

PATIENT
  Age: 81 Year
  Sex: Male

DRUGS (2)
  1. NEXIUM [Suspect]
     Dosage: 1 DF DAILY PO
     Route: 048
     Dates: start: 20040817, end: 20040826
  2. CEBUTID [Suspect]
     Dosage: 2 DF DAILY PO
     Route: 048
     Dates: start: 20040821, end: 20040826

REACTIONS (3)
  - LEUKOPENIA [None]
  - LYMPHOMA [None]
  - NEUTROPENIA [None]
